FAERS Safety Report 8030795-X (Version None)
Quarter: 2012Q1

REPORT INFORMATION
  Report Type: 
  Country: None (occurrence: None)
  Receive Date: 20120109
  Receipt Date: 20120105
  Transmission Date: 20120608
  Serious: Yes (Death)
  Sender: FDA-Public Use
  Company Number: PHHY2011DE38100

PATIENT
  Sex: Male

DRUGS (1)
  1. ONBREZ [Suspect]
     Dosage: UNK
     Route: 048

REACTIONS (2)
  - INCORRECT ROUTE OF DRUG ADMINISTRATION [None]
  - DEATH [None]
